FAERS Safety Report 10197164 (Version 1)
Quarter: 2014Q2

REPORT INFORMATION
  Report Type: Spontaneous
  Country: US (occurrence: None)
  Receive Date: 20140523
  Receipt Date: 20140523
  Transmission Date: 20141212
  Serious: Yes (Disabling)
  Sender: FDA-Public Use
  Company Number: None

PATIENT
  Age: 74 Year
  Sex: Female
  Weight: 79.38 kg

DRUGS (1)
  1. TAMOXIFEN [Suspect]
     Indication: OESTROGEN THERAPY
     Dosage: 1 PILL, ONCE DAILY

REACTIONS (8)
  - Age-related macular degeneration [None]
  - Age-related macular degeneration [None]
  - Macular cyst [None]
  - Visual acuity reduced [None]
  - Back pain [None]
  - Bone pain [None]
  - Gait disturbance [None]
  - Thrombosis [None]
